FAERS Safety Report 7731298-X (Version None)
Quarter: 2011Q3

REPORT INFORMATION
  Report Type: 
  Country: None (occurrence: None)
  Receive Date: 20110906
  Receipt Date: 20110825
  Transmission Date: 20111222
  Serious: Yes (Other)
  Sender: FDA-Public Use
  Company Number: CN-ASTRAZENECA-2011SE51169

PATIENT

DRUGS (1)
  1. IRESSA [Suspect]
     Indication: NON-SMALL CELL LUNG CANCER
     Route: 048
     Dates: start: 20110301, end: 20110801

REACTIONS (4)
  - WHITE BLOOD CELL COUNT DECREASED [None]
  - ASTHENIA [None]
  - ANAEMIA [None]
  - PLATELET COUNT DECREASED [None]
